FAERS Safety Report 15826252 (Version 2)
Quarter: 2019Q1

REPORT INFORMATION
  Report Type: Spontaneous
  Country: JP (occurrence: JP)
  Receive Date: 20190115
  Receipt Date: 20190204
  Transmission Date: 20190417
  Serious: Yes (Other)
  Sender: FDA-Public Use
  Company Number: JP-BAYER-2019-008954

PATIENT
  Age: 7 Decade
  Sex: Male

DRUGS (1)
  1. BAYASPIRIN 100 MG [Suspect]
     Active Substance: ASPIRIN
     Indication: ANGINA PECTORIS
     Dosage: 100 MG, QD
     Route: 048
     Dates: start: 201807

REACTIONS (4)
  - Cataract [None]
  - Retinal haemorrhage [None]
  - Diabetes mellitus [None]
  - Retinal vein occlusion [None]

NARRATIVE: CASE EVENT DATE: 201812
